FAERS Safety Report 15030788 (Version 1)
Quarter: 2018Q2

REPORT INFORMATION
  Report Type: Report from Study
  Country: US (occurrence: US)
  Receive Date: 20180619
  Receipt Date: 20180619
  Transmission Date: 20180711
  Serious: Yes (Hospitalization)
  Sender: FDA-Public Use
  Company Number: US-ACTELION-A-US2018-173684

PATIENT
  Age: 58 Year
  Sex: Female

DRUGS (11)
  1. KLONOPIN [Concomitant]
     Active Substance: CLONAZEPAM
  2. BUMETANIDE. [Concomitant]
     Active Substance: BUMETANIDE
  3. PROCRIT [Concomitant]
     Active Substance: ERYTHROPOIETIN
  4. POTASSIUM CHLORIDE. [Concomitant]
     Active Substance: POTASSIUM CHLORIDE
  5. FLUOXETINE [Concomitant]
     Active Substance: FLUOXETINE HYDROCHLORIDE
  6. SPIRONOLACTONE. [Concomitant]
     Active Substance: SPIRONOLACTONE
  7. OPSUMIT [Suspect]
     Active Substance: MACITENTAN
     Indication: PULMONARY ARTERIAL HYPERTENSION
     Dosage: 10 MG, QD
     Route: 048
     Dates: start: 20170801
  8. REVATIO [Concomitant]
     Active Substance: SILDENAFIL CITRATE
  9. CALCITROL [Concomitant]
     Active Substance: CALCITRIOL
  10. MAG-OX [Concomitant]
     Active Substance: MAGNESIUM OXIDE
  11. TOPROL XL [Concomitant]
     Active Substance: METOPROLOL SUCCINATE

REACTIONS (6)
  - Gout [Unknown]
  - Blood potassium decreased [Recovered/Resolved]
  - Blood sodium decreased [Recovered/Resolved]
  - Migraine [Unknown]
  - Vomiting [Unknown]
  - Asthenia [Unknown]

NARRATIVE: CASE EVENT DATE: 20180529
